FAERS Safety Report 6193796-2 (Version None)
Quarter: 2009Q2

REPORT INFORMATION
  Report Type: 
  Country: None (occurrence: None)
  Receive Date: 20090518
  Receipt Date: 20090512
  Transmission Date: 20091009
  Serious: No
  Sender: FDA-Public Use
  Company Number: US-B.I. PHARMACEUTICALS,INC./RIDGEFIELD-2002-BP-03805BP

PATIENT
  Age: 68 Year
  Sex: Male

DRUGS (3)
  1. FLOMAX [Suspect]
     Indication: BENIGN PROSTATIC HYPERPLASIA
     Dosage: .4MG
     Route: 048
     Dates: start: 20010501
  2. VALIUM [Concomitant]
     Dosage: 5MG
  3. PREVACID [Concomitant]
     Dosage: 30MG

REACTIONS (5)
  - BRONCHITIS [None]
  - DYSURIA [None]
  - MICTURITION URGENCY [None]
  - NOCTURIA [None]
  - URINARY HESITATION [None]
